FAERS Safety Report 4299146-0 (Version None)
Quarter: 2004Q1

REPORT INFORMATION
  Report Type: 
  Country: None (occurrence: None)
  Receive Date: 20040217
  Receipt Date: 20040204
  Transmission Date: 20041129
  Serious: Yes (Hospitalization, Disabling)
  Sender: FDA-Public Use
  Company Number: 2003186495JP

PATIENT
  Age: 66 Year
  Sex: Female
  Weight: 54.5 kg

DRUGS (4)
  1. EPIRUBICIN [Suspect]
     Indication: BREAST CANCER
     Dosage: 130 MG, CYCLIC, IV DRIP
     Route: 041
     Dates: start: 20031106, end: 20031106
  2. CYCLOPHOSPHAMIDE [Suspect]
     Indication: BREAST CANCER
     Dosage: 900 MG, CYCLIC, IV DRIP
     Route: 041
     Dates: start: 20031106, end: 20031106
  3. DECADRON [Suspect]
     Indication: VOMITING
     Dosage: 12 MG, QD, IV
     Route: 042
     Dates: start: 20031106, end: 20031106
  4. SEROTONE (AZASETRON HYDROCHLORIDE) [Suspect]
     Indication: VOMITING
     Dosage: 10 MG, QD, IV
     Route: 042
     Dates: start: 20031106, end: 20031106

REACTIONS (1)
  - CEREBRAL INFARCTION [None]
